FAERS Safety Report 15675404 (Version 1)
Quarter: 2018Q4

REPORT INFORMATION
  Report Type: Spontaneous
  Country: US (occurrence: US)
  Receive Date: 20181129
  Receipt Date: 20181129
  Transmission Date: 20190205
  Serious: Yes (Life-Threatening)
  Sender: FDA-Public Use
  Company Number: None

PATIENT
  Age: 68 Year
  Sex: Female
  Weight: 112.05 kg

DRUGS (1)
  1. STELARA [Suspect]
     Active Substance: USTEKINUMAB
     Indication: PSORIASIS
     Dosage: ?          QUANTITY:1 INJECTION(S);OTHER FREQUENCY:12 WEEKS;?
     Route: 058
     Dates: start: 20130101, end: 20171229

REACTIONS (4)
  - Atrial flutter [None]
  - Pericarditis [None]
  - Bronchitis [None]
  - Lung infection [None]

NARRATIVE: CASE EVENT DATE: 20180310
